FAERS Safety Report 25484663 (Version 1)
Quarter: 2025Q2

REPORT INFORMATION
  Report Type: Spontaneous
  Country: US (occurrence: None)
  Receive Date: 20250627
  Receipt Date: 20250627
  Transmission Date: 20250717
  Serious: Yes (Disabling, Other)
  Sender: FDA-CTU
  Company Number: None

PATIENT
  Age: 36 Year
  Sex: Male
  Weight: 71.67 kg

DRUGS (4)
  1. FINASTERIDE [Suspect]
     Active Substance: FINASTERIDE
     Indication: Alopecia
     Dosage: FREQUENCY : DAILY;?
     Route: 048
     Dates: start: 20211207, end: 20220407
  2. VITAMIN D [Concomitant]
     Active Substance: VITAMIN D NOS
  3. PROBIOTICS NOS [Concomitant]
     Active Substance: PROBIOTICS NOS
  4. UNSPECIFIED INGREDIENT [Concomitant]
     Active Substance: UNSPECIFIED INGREDIENT

REACTIONS (17)
  - Alopecia [None]
  - Therapy cessation [None]
  - Oesophageal achalasia [None]
  - Dry skin [None]
  - Semen viscosity decreased [None]
  - Feeling abnormal [None]
  - Feeling cold [None]
  - Sexual dysfunction [None]
  - Genital discolouration [None]
  - Hair texture abnormal [None]
  - Pain [None]
  - Hair texture abnormal [None]
  - Alopecia [None]
  - Hair growth abnormal [None]
  - Disturbance in attention [None]
  - Disturbance in attention [None]
  - Seborrhoea [None]

NARRATIVE: CASE EVENT DATE: 20220807
